FAERS Safety Report 7548547-3 (Version None)
Quarter: 2011Q2

REPORT INFORMATION
  Report Type: 
  Country: None (occurrence: None)
  Receive Date: 20110615
  Receipt Date: 20110610
  Transmission Date: 20111010
  Serious: Yes (Hospitalization)
  Sender: FDA-Public Use
  Company Number: US-AMGEN-USASP2011030027

PATIENT
  Sex: Female

DRUGS (1)
  1. NPLATE [Suspect]
     Indication: PRODUCT USED FOR UNKNOWN INDICATION

REACTIONS (2)
  - GENERAL PHYSICAL HEALTH DETERIORATION [None]
  - HOSPITALISATION [None]
